FAERS Safety Report 12318354 (Version 1)
Quarter: 2016Q2

REPORT INFORMATION
  Report Type: Spontaneous
  Country: US (occurrence: None)
  Receive Date: 20160428
  Receipt Date: 20160428
  Transmission Date: 20160815
  Serious: No
  Sender: FDA-Public Use
  Company Number: None

PATIENT
  Sex: Female

DRUGS (1)
  1. IMATINIB 400MG RANBAXY [Suspect]
     Active Substance: IMATINIB
     Indication: CHRONIC MYELOID LEUKAEMIA
     Route: 048
     Dates: start: 20151021

REACTIONS (5)
  - Neuropathy peripheral [None]
  - Diarrhoea [None]
  - Eye swelling [None]
  - Fatigue [None]
  - Arthralgia [None]
